FAERS Safety Report 7339999-2 (Version None)
Quarter: 2011Q1

REPORT INFORMATION
  Report Type: 
  Country: None (occurrence: None)
  Receive Date: 20110309
  Receipt Date: 20110304
  Transmission Date: 20110831
  Serious: No
  Sender: FDA-Public Use
  Company Number: US-PFIZER INC-2010150474

PATIENT
  Sex: Female

DRUGS (4)
  1. SUTENT [Suspect]
     Indication: METASTATIC CARCINOID TUMOUR
     Dosage: 50 MG, 1X/DAY
     Route: 048
     Dates: start: 20100831, end: 20100920
  2. VERAPAMIL [Concomitant]
     Dosage: UNK
  3. LEVOTHYROXINE [Concomitant]
     Dosage: UNK
  4. LORAZEPAM [Concomitant]
     Dosage: UNK

REACTIONS (1)
  - ASTHENIA [None]
